FAERS Safety Report 5285682-7 (Version None)
Quarter: 2007Q1

REPORT INFORMATION
  Report Type: 
  Country: None (occurrence: None)
  Receive Date: 20070126
  Receipt Date: 20050916
  Transmission Date: 20070707
  Serious: No
  Sender: FDA-Public Use
  Company Number: 2006CT001160

PATIENT
  Age: 50 Year
  Sex: Male
  Weight: 73 kg

DRUGS (6)
  1. VENTAVIS [Suspect]
     Indication: PULMONARY HYPERTENSION
     Dosage: SEE IMAGE
     Route: 055
     Dates: start: 20050822, end: 20050831
  2. VENTAVIS [Suspect]
     Indication: PULMONARY HYPERTENSION
     Dosage: SEE IMAGE
     Route: 055
     Dates: start: 20050831, end: 20050916
  3. HYDROXYZINE [Concomitant]
  4. VITACON [Concomitant]
  5. DYRENIUM [Concomitant]
  6. TRACLEER [Concomitant]

REACTIONS (2)
  - CHEST PAIN [None]
  - FATIGUE [None]
